FAERS Safety Report 23559037 (Version 2)
Quarter: 2024Q2

REPORT INFORMATION
  Report Type: Report from Study
  Country: US (occurrence: US)
  Receive Date: 20240223
  Receipt Date: 20240426
  Transmission Date: 20240715
  Serious: Yes (Hospitalization, Other)
  Sender: FDA-Public Use
  Company Number: US-ABBVIE-5560818

PATIENT
  Age: 73 Year
  Sex: Female

DRUGS (3)
  1. HUMIRA [Suspect]
     Active Substance: ADALIMUMAB
     Indication: Rheumatoid arthritis
     Dosage: FORM STRENGTH: 40 MILLIGRAM?STOP DATE: 2022
     Route: 058
     Dates: start: 20220130
  2. HUMIRA [Suspect]
     Active Substance: ADALIMUMAB
     Dosage: FORM STRENGTH: 40 MILLIGRAM?START DATE: 2022?STOP DATE: 2022
     Route: 058
  3. HUMIRA [Suspect]
     Active Substance: ADALIMUMAB
     Dosage: FORM STRENGTH: 40 MILLIGRAM?START DATE: 2022
     Route: 058

REACTIONS (11)
  - COVID-19 [Recovered/Resolved]
  - Oropharyngeal pain [Recovering/Resolving]
  - Infection [Recovered/Resolved]
  - Investigation abnormal [Recovering/Resolving]
  - Pneumonia [Recovered/Resolved]
  - Pharyngeal operation [Unknown]
  - Urinary tract infection [Recovered/Resolved]
  - Feeding disorder [Unknown]
  - Dysphagia [Unknown]
  - Escherichia infection [Recovered/Resolved]
  - Weight decreased [Unknown]

NARRATIVE: CASE EVENT DATE: 20231203
